FAERS Safety Report 9838162 (Version 1)
Quarter: 2014Q1

REPORT INFORMATION
  Report Type: Report from Study
  Country: CA (occurrence: CA)
  Receive Date: 20140123
  Receipt Date: 20140123
  Transmission Date: 20141002
  Serious: Yes (Other)
  Sender: FDA-Public Use
  Company Number: CA-ALEXION PHARMACEUTICALS INC.-A201400184

PATIENT
  Age: 62 Year
  Sex: Female
  Weight: 54 kg

DRUGS (8)
  1. SOLIRIS [Suspect]
     Indication: PAROXYSMAL NOCTURNAL HAEMOGLOBINURIA
     Dosage: 600 MG, QW
     Route: 042
     Dates: start: 20130523, end: 20130613
  2. SOLIRIS [Suspect]
     Dosage: 900 MG, Q2W
     Route: 042
     Dates: start: 20130620
  3. NEORAL [Concomitant]
     Indication: IMMUNOSUPPRESSION
     Dosage: 200 MG, QD
     Route: 048
     Dates: start: 20130429
  4. NEORAL [Concomitant]
     Dosage: 50 MG, QHS
     Route: 048
     Dates: start: 20130429
  5. AMLODIPINE [Concomitant]
     Indication: HYPERTENSION
     Dosage: 7.5 MG, QD
     Route: 048
     Dates: start: 20130417
  6. RAMIPRIL [Concomitant]
     Indication: HYPERTENSION
     Dosage: 10 MG, QD
     Route: 048
     Dates: start: 20130402
  7. PAROXETINE [Concomitant]
     Indication: DEPRESSION
     Dosage: 20 MG, QD
     Route: 048
     Dates: start: 20130402
  8. CILOXAN [Concomitant]
     Indication: EYE INFLAMMATION
     Dosage: EYE OINTMENT, APPLY TO BOTH EYES FOR 2 MONTHS
     Route: 047
     Dates: start: 20131105

REACTIONS (2)
  - Platelet count decreased [Not Recovered/Not Resolved]
  - Haemoglobin decreased [Unknown]
